FAERS Safety Report 16376455 (Version 1)
Quarter: 2019Q2

REPORT INFORMATION
  Report Type: Spontaneous
  Country: US (occurrence: US)
  Receive Date: 20190531
  Receipt Date: 20190531
  Transmission Date: 20190711
  Serious: Yes (Death, Other)
  Sender: FDA-Public Use
  Company Number: US-BRISTOL-MYERS SQUIBB COMPANY-BMS-2019-051355

PATIENT
  Age: 71 Year
  Sex: Female

DRUGS (3)
  1. DEPO-MEDROL [Suspect]
     Active Substance: METHYLPREDNISOLONE ACETATE
     Indication: PAIN MANAGEMENT
     Dosage: 80MG/ML PER 1 ML SINGLE DOSE VIAL
     Route: 065
     Dates: start: 20190423
  2. KENALOG [Suspect]
     Active Substance: TRIAMCINOLONE ACETONIDE
     Indication: PAIN MANAGEMENT
     Dosage: 40 MG/ML, 1ML IN FILL VOLUME
     Route: 065
     Dates: start: 20190423
  3. BUPIVACAINE HCL [Suspect]
     Active Substance: BUPIVACAINE HYDROCHLORIDE
     Indication: PAIN MANAGEMENT
     Dosage: 5MG/ML 10ML FILL VOLUME VIAL
     Route: 065
     Dates: start: 20190423

REACTIONS (4)
  - Septic shock [Fatal]
  - Sepsis [Fatal]
  - Skin infection [Unknown]
  - Cardiac arrest [Fatal]

NARRATIVE: CASE EVENT DATE: 20190424
